FAERS Safety Report 20212692 (Version 2)
Quarter: 2021Q4

REPORT INFORMATION
  Report Type: Spontaneous
  Country: NL (occurrence: NL)
  Receive Date: 20211221
  Receipt Date: 20211222
  Transmission Date: 20220303
  Serious: Yes (Life-Threatening, Hospitalization)
  Sender: FDA-Public Use
  Company Number: NL-PFIZER INC-202101781239

PATIENT
  Age: 54 Year
  Sex: Male

DRUGS (3)
  1. LORAZEPAM [Suspect]
     Active Substance: LORAZEPAM
     Dosage: UNK
  2. VALPROIC ACID [Suspect]
     Active Substance: VALPROIC ACID
     Dosage: UNK
  3. OLANZAPINE [Suspect]
     Active Substance: OLANZAPINE
     Dosage: UNK

REACTIONS (2)
  - Toxicity to various agents [Unknown]
  - Mental disorder [Unknown]
